FAERS Safety Report 13313730 (Version 1)
Quarter: 2017Q1

REPORT INFORMATION
  Report Type: Spontaneous
  Country: US (occurrence: US)
  Receive Date: 20170309
  Receipt Date: 20170309
  Transmission Date: 20170428
  Serious: Yes (Life-Threatening)
  Sender: FDA-Public Use
  Company Number: US-TURING PHARMACEUTICALS-2016TNG00011

PATIENT
  Age: 4 Month
  Sex: Female
  Weight: 6.89 kg

DRUGS (5)
  1. LEUCOVORIN. [Concomitant]
     Active Substance: LEUCOVORIN
     Dosage: 10 MG, 3X/WEEK
     Dates: start: 2015
  2. SULFADIAZINE. [Concomitant]
     Active Substance: SULFADIAZINE
     Dosage: 50 MG/KG, 2X/DAY
  3. DARAPRIM [Suspect]
     Active Substance: PYRIMETHAMINE
     Indication: TOXOPLASMOSIS
     Dosage: 1 MG/KG, 1X/DAY
     Route: 048
     Dates: start: 20160110, end: 20160314
  4. UNSPECIFIED ^THYROID DOSE^ [Suspect]
     Active Substance: UNSPECIFIED INGREDIENT
     Indication: HYPOTHYROIDISM
  5. LEUCOVORIN. [Concomitant]
     Active Substance: LEUCOVORIN
     Dosage: 10 MG, 1X/DAY
     Dates: start: 20160101

REACTIONS (3)
  - Neutropenia [Recovering/Resolving]
  - Hypothyroidism [Unknown]
  - Product compounding quality issue [Unknown]

NARRATIVE: CASE EVENT DATE: 201603
